FAERS Safety Report 4694561-5 (Version None)
Quarter: 2005Q2

REPORT INFORMATION
  Report Type: 
  Country: None (occurrence: None)
  Receive Date: 20050614
  Receipt Date: 20050329
  Transmission Date: 20051028
  Serious: No
  Sender: FDA-Public Use
  Company Number: USA050394351

PATIENT
  Sex: Male

DRUGS (7)
  1. CIALIS [Suspect]
     Dosage: 20 MG DAY
     Dates: start: 20050324
  2. PLAVIX [Concomitant]
  3. ACTOS [Concomitant]
  4. GLUCOPHAGE [Concomitant]
  5. LIPITOR [Concomitant]
  6. ZETIA [Concomitant]
  7. ZOLOFT [Concomitant]

REACTIONS (1)
  - THERAPEUTIC RESPONSE DECREASED [None]
